FAERS Safety Report 24369024 (Version 1)
Quarter: 2024Q3

REPORT INFORMATION
  Report Type: Spontaneous
  Country: EG (occurrence: EG)
  Receive Date: 20240927
  Receipt Date: 20240927
  Transmission Date: 20241016
  Serious: Yes (Hospitalization, Other)
  Sender: NOVO NORDISK
  Company Number: EG-NOVOPROD-1278632

PATIENT
  Age: 858 Month
  Sex: Female
  Weight: 75 kg

DRUGS (9)
  1. DIOSMIN [Concomitant]
     Active Substance: DIOSMIN
     Indication: Varicose vein
     Dosage: BID, (1 TAB. AFTER BREAKFAST AND1 TAB. BEFORE SLEEP)
     Route: 048
  2. CALCIUM [Concomitant]
     Active Substance: CALCIUM
     Indication: Vitamin supplementation
     Dosage: QD (1 TAB./NIGHT)
     Route: 048
  3. CALCIUM [Concomitant]
     Active Substance: CALCIUM
     Indication: Mineral supplementation
  4. THIOTACID COMPOUND [Concomitant]
     Indication: Nervous system disorder
     Dosage: QD, (1 TAB. ON EMPTY STOMACH)
     Route: 048
  5. OSSOFORTIN D [Concomitant]
     Indication: Vitamin supplementation
     Dosage: QD, (1 TAB./MORNING)
     Route: 048
  6. TOUJEO [Concomitant]
     Active Substance: INSULIN GLARGINE
     Indication: Diabetes mellitus
     Dosage: 19 IU, QD
     Route: 058
  7. GINKGO [Concomitant]
     Active Substance: GINKGO
     Indication: Cerebrovascular insufficiency
     Dosage: BID , (1 TAB./ MORN. AND 1 TAB./NIGHT)
     Route: 048
  8. TRENTAL [Concomitant]
     Active Substance: PENTOXIFYLLINE
     Indication: Product used for unknown indication
     Dosage: UNK, QD
     Route: 048
  9. ACTRAPID [Suspect]
     Active Substance: INSULIN HUMAN
     Indication: Diabetes mellitus
     Dosage: 16 IU, BID (8 IU/BREAKFAST AND 8 IU/LUNCH)
     Route: 058

REACTIONS (5)
  - Coma [Unknown]
  - Limb discomfort [Not Recovered/Not Resolved]
  - Chills [Not Recovered/Not Resolved]
  - Hypertension [Unknown]
  - Wrong technique in product usage process [Unknown]
